FAERS Safety Report 6664707-8 (Version None)
Quarter: 2010Q2

REPORT INFORMATION
  Report Type: 
  Country: None (occurrence: None)
  Receive Date: 20100401
  Receipt Date: 20100322
  Transmission Date: 20101027
  Serious: Yes (Life-Threatening, Hospitalization, Other)
  Sender: FDA-Public Use
  Company Number: DE-ABBOTT-10P-062-0629926-00

PATIENT
  Sex: Male
  Weight: 88 kg

DRUGS (22)
  1. ZEMPLAR [Suspect]
     Indication: RENAL FAILURE
     Route: 042
     Dates: start: 20090123
  2. ASPIRIN [Concomitant]
     Indication: DRUG USE FOR UNKNOWN INDICATION
     Dosage: 0.5 TABLET, DAILY
     Dates: start: 20080303
  3. ATACAND [Concomitant]
     Indication: CARDIAC DISORDER
     Dates: start: 20070216
  4. CLONIDIN RETARD [Concomitant]
     Indication: DRUG USE FOR UNKNOWN INDICATION
  5. AMLODIPINE [Concomitant]
     Indication: DRUG USE FOR UNKNOWN INDICATION
     Route: 048
     Dates: start: 20090105
  6. TORSEMIDE [Concomitant]
     Indication: DRUG USE FOR UNKNOWN INDICATION
     Dates: start: 20070305
  7. INEGY [Concomitant]
     Indication: DRUG USE FOR UNKNOWN INDICATION
     Dosage: 10/20, DAILY
     Dates: start: 20050413
  8. SIMVASTATIN [Concomitant]
     Indication: DRUG USE FOR UNKNOWN INDICATION
     Dates: start: 20070704
  9. CA ACETATE NEFRO [Concomitant]
     Indication: DRUG USE FOR UNKNOWN INDICATION
     Dates: start: 20070706
  10. ZINKIT [Concomitant]
     Indication: DRUG USE FOR UNKNOWN INDICATION
     Dates: start: 20070516
  11. FOSRENOL [Concomitant]
     Indication: DRUG USE FOR UNKNOWN INDICATION
     Dates: start: 20090318
  12. CINACALCET HYDROCHLORIDE [Concomitant]
     Indication: DRUG USE FOR UNKNOWN INDICATION
     Dates: start: 20090504
  13. NEO REC 4000 [Concomitant]
     Indication: DRUG USE FOR UNKNOWN INDICATION
     Dosage: 2 INJECTIONS PER WEEK
     Dates: start: 20070716
  14. FERRLECIT [Concomitant]
     Indication: DRUG USE FOR UNKNOWN INDICATION
     Dosage: 40
     Dates: start: 20070309
  15. DEKRISTOL [Concomitant]
     Indication: DRUG USE FOR UNKNOWN INDICATION
     Dates: start: 20070305
  16. ASPIRIN [Concomitant]
     Indication: CARDIAC DISORDER
  17. CARVEDILOL [Concomitant]
     Indication: CARDIAC DISORDER
  18. AMIODARONE HCL [Concomitant]
     Indication: ARRHYTHMIA
  19. PANTOPRAZOLE [Concomitant]
     Indication: PROPHYLAXIS AGAINST GASTROINTESTINAL ULCER
  20. ACETYLCYSTEINE [Concomitant]
     Indication: HYPERCHLORHYDRIA
  21. AMBROXOL [Concomitant]
     Indication: HYPERCHLORHYDRIA
     Route: 048
  22. BERODUAL [Concomitant]
     Indication: DYSPNOEA

REACTIONS (15)
  - ANGINA PECTORIS [None]
  - ATRIAL FIBRILLATION [None]
  - BRADYCARDIA [None]
  - CARDIOMEGALY [None]
  - CHILLS [None]
  - DYSPNOEA [None]
  - EMPHYSEMA [None]
  - ENTEROCOCCAL INFECTION [None]
  - PYREXIA [None]
  - RESPIRATORY FAILURE [None]
  - RESUSCITATION [None]
  - SLEEP APNOEA SYNDROME [None]
  - SOMNOLENCE [None]
  - STAPHYLOCOCCAL INFECTION [None]
  - TACHYARRHYTHMIA [None]
